FAERS Safety Report 10033639 (Version 1)
Quarter: 2014Q1

REPORT INFORMATION
  Report Type: Spontaneous
  Country: US (occurrence: US)
  Receive Date: 20140325
  Receipt Date: 20140325
  Transmission Date: 20141002
  Serious: No
  Sender: FDA-Public Use
  Company Number: US-BIOGENIDEC-2014BI023532

PATIENT
  Sex: Male

DRUGS (5)
  1. TECFIDERA [Suspect]
     Indication: MULTIPLE SCLEROSIS
     Route: 048
     Dates: start: 201306
  2. METOPROLOL SUCCINATE [Concomitant]
  3. ADVIL [Concomitant]
  4. VITAMIN B COMPLEX [Concomitant]
  5. VITAMIN D [Concomitant]

REACTIONS (3)
  - Treatment failure [Unknown]
  - Paraesthesia [Unknown]
  - Hypoaesthesia [Unknown]
